FAERS Safety Report 18429018 (Version 3)
Quarter: 2020Q4

REPORT INFORMATION
  Report Type: Spontaneous
  Country: US (occurrence: US)
  Receive Date: 20201026
  Receipt Date: 20201123
  Transmission Date: 20210114
  Serious: Yes (Other)
  Sender: FDA-Public Use
  Company Number: US-PFIZER INC-2020411125

PATIENT
  Age: 79 Year
  Sex: Female
  Weight: 65.77 kg

DRUGS (4)
  1. BRAFTOVI [Suspect]
     Active Substance: ENCORAFENIB
     Dosage: 225 MG, DAILY (3 PILLS A DAY)
     Route: 048
     Dates: start: 2020
  2. BRAFTOVI [Suspect]
     Active Substance: ENCORAFENIB
     Dosage: 300 MG (TAKING 4 PILLS A DAY)
     Route: 048
     Dates: start: 2020
  3. BRAFTOVI [Suspect]
     Active Substance: ENCORAFENIB
     Dosage: 150 MG, DAILY (SHE STARTED TAKING 2 PILLS A DAY)
     Route: 048
     Dates: start: 2020
  4. BRAFTOVI [Suspect]
     Active Substance: ENCORAFENIB
     Indication: COLON CANCER STAGE IV
     Dosage: 75MG CAPSULE, UNKNOWN NUMBER OF CAPSULES PER DAY BY MOUTH
     Route: 048
     Dates: start: 2020

REACTIONS (6)
  - Nausea [Unknown]
  - Arthralgia [Unknown]
  - Hyponatraemia [Recovered/Resolved]
  - Neoplasm progression [Unknown]
  - Muscular weakness [Not Recovered/Not Resolved]
  - Pain in extremity [Not Recovered/Not Resolved]

NARRATIVE: CASE EVENT DATE: 2020
